FAERS Safety Report 11279190 (Version 1)
Quarter: 2015Q3

REPORT INFORMATION
  Report Type: Spontaneous
  Country: US (occurrence: None)
  Receive Date: 20150715
  Receipt Date: 20150715
  Transmission Date: 20151125
  Serious: Yes (Death)
  Sender: FDA-Public Use
  Company Number: RAP-0109-2014

PATIENT
  Sex: Male

DRUGS (6)
  1. PROCYSBI DELAYED-RELEASE [Suspect]
     Active Substance: CYSTEAMINE BITARTRATE
     Indication: CYSTINOSIS
     Route: 048
     Dates: start: 201312, end: 201312
  2. DULOXETINE. [Concomitant]
     Active Substance: DULOXETINE
  3. TRAMETINIB [Concomitant]
     Active Substance: TRAMETINIB
  4. INSULIN [Concomitant]
     Active Substance: INSULIN NOS
  5. CYSTEAMINE (MERCAPTAMINE) [Concomitant]
  6. DALTEPARIN [Concomitant]
     Active Substance: DALTEPARIN

REACTIONS (2)
  - Malignant melanoma [None]
  - Malignant neoplasm progression [None]
